FAERS Safety Report 6866274-2 (Version None)
Quarter: 2010Q2

REPORT INFORMATION
  Report Type: 
  Country: None (occurrence: None)
  Receive Date: 20100601
  Receipt Date: 20100519
  Transmission Date: 20101027
  Serious: No
  Sender: FDA-Public Use
  Company Number: 2010-00458

PATIENT
  Age: 60 Year
  Sex: Male
  Weight: 61.2356 kg

DRUGS (3)
  1. ZICAM NASAL PRODUCTS [Suspect]
     Dosage: BID, 3 DAYS
     Dates: start: 20100101, end: 20100101
  2. LISINOPRIL [Concomitant]
  3. ONE-A-DAY MULTIVITAMIN [Concomitant]

REACTIONS (2)
  - AGEUSIA [None]
  - ANOSMIA [None]
